FAERS Safety Report 6599524-0 (Version None)
Quarter: 2010Q1

REPORT INFORMATION
  Report Type: 
  Country: None (occurrence: None)
  Receive Date: 20100224
  Receipt Date: 20100222
  Transmission Date: 20100710
  Serious: Yes (Other)
  Sender: FDA-Public Use
  Company Number: FR-ROCHE-676822

PATIENT
  Sex: Female

DRUGS (9)
  1. RIVOTRIL [Suspect]
     Dosage: STRENGTH: 2.5 MG/ML, DRINKABLE SOLUTION
     Route: 048
     Dates: start: 20090917, end: 20091001
  2. LYRICA [Suspect]
     Route: 048
     Dates: start: 20090917, end: 20091001
  3. DILTIAZEM HCL [Concomitant]
     Dosage: DRUG: BITILDIEM 90 LP
  4. MOPRAL [Concomitant]
     Dosage: DRUG: MOPROL 20
  5. DAFALGAN [Concomitant]
     Dosage: DRUG: DAFALGAN 500: 1 TO 2:3/DAY
  6. HYDROCORTISONE [Concomitant]
  7. STILNOX [Concomitant]
  8. MOTILIUM [Concomitant]
  9. GAVISCON [Concomitant]

REACTIONS (1)
  - ANGIOEDEMA [None]
